FAERS Safety Report 10261318 (Version 1)
Quarter: 2014Q2

REPORT INFORMATION
  Report Type: Spontaneous
  Country: US (occurrence: US)
  Receive Date: 20140626
  Receipt Date: 20140626
  Transmission Date: 20141212
  Serious: Yes (Hospitalization)
  Sender: FDA-Public Use
  Company Number: US-MERZ NORTH AMERICA, INC.-14MRZ-00223

PATIENT
  Age: 3 Month
  Sex: Female

DRUGS (1)
  1. CUVPOSA [Suspect]
     Indication: DROOLING
     Dosage: 0.86 ML, Q 8 HOURS, VIA G TUBE

REACTIONS (2)
  - Convulsion [Recovered/Resolved]
  - Pyrexia [Recovered/Resolved]
